FAERS Safety Report 12203501 (Version 9)
Quarter: 2017Q2

REPORT INFORMATION
  Report Type: Spontaneous
  Country: US (occurrence: US)
  Receive Date: 20160323
  Receipt Date: 20170619
  Transmission Date: 20170830
  Serious: Yes (Life-Threatening, Congenital Anomaly, Other)
  Sender: FDA-Public Use
  Company Number: PHEH2016US006946

PATIENT
  Sex: Female

DRUGS (3)
  1. ONDANSETRON [Suspect]
     Active Substance: ONDANSETRON
     Indication: FOETAL EXPOSURE DURING PREGNANCY
     Dosage: MOTHER^S DOSE: 4 MG PER DAY (QD)
     Route: 064
  2. ZOFRAN [Suspect]
     Active Substance: ONDANSETRON HYDROCHLORIDE
     Indication: FOETAL EXPOSURE DURING PREGNANCY
     Route: 064
  3. ONDANSETRON HYDROCHLORIDE. [Suspect]
     Active Substance: ONDANSETRON HYDROCHLORIDE
     Indication: FOETAL EXPOSURE DURING PREGNANCY
     Route: 064

REACTIONS (19)
  - Pulmonary artery dilatation [Unknown]
  - Anxiety [Unknown]
  - Patent ductus arteriosus [Unknown]
  - Nasal congestion [Unknown]
  - Congenital tricuspid valve incompetence [Unknown]
  - Foetal exposure during pregnancy [Unknown]
  - Neonatal tachypnoea [Unknown]
  - Cyanosis neonatal [Unknown]
  - Right ventricular dilatation [Unknown]
  - Impetigo [Unknown]
  - Congenital anomaly [Unknown]
  - Anhedonia [Unknown]
  - Selective eating disorder [Unknown]
  - Otitis media [Unknown]
  - Heart disease congenital [Unknown]
  - Right atrial enlargement [Unknown]
  - Pain [Unknown]
  - Anomalous pulmonary venous connection [Unknown]
  - Acute respiratory failure [Unknown]
